FAERS Safety Report 9511680 (Version 1)
Quarter: 2013Q1

REPORT INFORMATION
  Report Type: Spontaneous
  Country: US (occurrence: None)
  Receive Date: 20130305
  Receipt Date: 20130305
  Transmission Date: 20140127
  Serious: Yes (Hospitalization)
  Sender: FDA-Public Use
  Company Number: 163-21880-12052065

PATIENT
  Age: 72 Year
  Sex: Male
  Weight: 74.84 kg

DRUGS (29)
  1. REVLIMID (LENALIDOMIDE) (25 MILLIGRAM, CAPSULES) [Suspect]
     Indication: PLASMA CELL MYELOMA
     Dosage: 25 MG, DAILY X 1-14 DAYS, PO?
     Route: 048
     Dates: start: 20120501
  2. ACYCLOVIR (ACICLOVIR) (UNKNOWN) [Concomitant]
  3. ATENOLOL (ATENOLOL) (UNKNOWN) [Concomitant]
  4. AZITHROMYCIN (AZITHROMYCIN) (UNKNOWN) [Concomitant]
  5. CROMOLYN (CROMOGLICATE SODIUM) (UNKNOWN) [Concomitant]
  6. DEXAMETHASONE (DEXAMETHASONE) (UNKNOWN) [Concomitant]
  7. DICLOFENAC (DICLOFENAC) (UNKNOWN) [Concomitant]
  8. EXFORGE (AMLODIPINE W/VALSARTAN) (UNKNOWN) [Concomitant]
  9. FEXOFENADINE (FEXOFENADINE) (UNKNOWN) [Concomitant]
  10. FLUNISOLIDE (FLUNISOLIDE) (UNKNOWN) [Concomitant]
  11. FOLIC ACID (FOLIC ACID) (UNKNOWN) [Concomitant]
  12. FUROSEMIDE (FUROSEMIDE) (UNKNOWN) [Concomitant]
  13. GLUCOSAMINE/CHONDROITIN (GLUCOSAMINE W/CHONDROITIN SULFATE) (UNKNOWN) [Concomitant]
  14. IRON [Concomitant]
  15. METFORMIN (METFROMIN) (UNKNOWN) [Concomitant]
  16. MOM (MAGNESIUM HYDROXIDE) (UNKNOWN) [Concomitant]
  17. MIRTAZAINE (MIRTAZAPINE) (UNKNOWN) [Concomitant]
  18. PANTOPRAZOLE [Concomitant]
  19. PATANOL (OLOPATADINE HYDROCHLORIDE) (UNKNOWN) [Concomitant]
  20. POTASSIUM (POTASIUM) (UNKNOWN) [Concomitant]
  21. RANITIDINE (RANITIDINE) (UNKNOWN) [Concomitant]
  22. SERTRALINE (SERTRALINE) (UNKNOWN) [Concomitant]
  23. SIMETHICONE (DIMETICONE, ACTIVATED) (UNKNOWN) [Concomitant]
  24. SIMVASTATIN [Concomitant]
  25. SINGULAIR [Concomitant]
  26. STOOL SOFTENER (DOCUSATE SODIUM) (UNKNOWN) [Concomitant]
  27. TAMSULOSIN (TAMSULOSIN) (UNKNOWN) [Concomitant]
  28. VELCADE [Concomitant]
  29. VICDIN (VICODIN) (UNKNOWN) [Concomitant]

REACTIONS (2)
  - Intestinal obstruction [None]
  - Pancreatitis [None]
